FAERS Safety Report 20383139 (Version 1)
Quarter: 2022Q1

REPORT INFORMATION
  Report Type: Spontaneous
  Country: US (occurrence: US)
  Receive Date: 20220127
  Receipt Date: 20220127
  Transmission Date: 20220423
  Serious: No
  Sender: FDA-Public Use
  Company Number: US-GSKCCFUS-Case-01275240_AE-74467

PATIENT
  Sex: Male

DRUGS (1)
  1. ADVAIR HFA [Suspect]
     Active Substance: FLUTICASONE PROPIONATE\SALMETEROL XINAFOATE
     Indication: Product used for unknown indication
     Dosage: 2 PUFF(S), QD, 45 MCG/21 MCG
     Route: 055
     Dates: start: 20220104

REACTIONS (3)
  - Overdose [Unknown]
  - Wrong technique in product usage process [Unknown]
  - Product dose omission issue [Unknown]
